FAERS Safety Report 21337127 (Version 1)
Quarter: 2022Q3

REPORT INFORMATION
  Report Type: Report from Study
  Country: JP (occurrence: JP)
  Receive Date: 20220915
  Receipt Date: 20220915
  Transmission Date: 20221026
  Serious: Yes (Hospitalization)
  Sender: FDA-Public Use
  Company Number: JP-VIIV HEALTHCARE LIMITED-JP2018JPN170231

PATIENT

DRUGS (21)
  1. ABACAVIR SULFATE\DOLUTEGRAVIR SODIUM\LAMIVUDINE [Suspect]
     Active Substance: ABACAVIR SULFATE\DOLUTEGRAVIR SODIUM\LAMIVUDINE
     Indication: HIV infection
     Dosage: 1 DF, 1D
     Route: 048
     Dates: start: 20170815, end: 20220619
  2. BILASTINE [Concomitant]
     Active Substance: BILASTINE
     Indication: Seasonal allergy
     Dosage: UNK
     Dates: start: 20190204, end: 201907
  3. BILASTINE [Concomitant]
     Active Substance: BILASTINE
     Dosage: UNK
     Dates: start: 20191023, end: 20200626
  4. NASONEX NASAL SOLUTIONS [Concomitant]
     Indication: Seasonal allergy
     Dosage: UNK
     Dates: start: 20190204, end: 201907
  5. NASONEX NASAL SOLUTIONS [Concomitant]
     Dosage: UNK
     Dates: start: 20191023, end: 20200626
  6. NASONEX NASAL SOLUTIONS [Concomitant]
     Dosage: UNK
     Dates: start: 20220319, end: 20220618
  7. ALESION OPHTHALMIC SOLUTION 0.05% [Concomitant]
     Indication: Seasonal allergy
     Dosage: UNK
     Dates: start: 20190204, end: 201907
  8. ALESION OPHTHALMIC SOLUTION 0.05% [Concomitant]
     Dosage: UNK
     Dates: start: 20191023, end: 20200626
  9. ALESION OPHTHALMIC SOLUTION 0.05% [Concomitant]
     Dosage: UNK
     Dates: start: 20210222, end: 20210521
  10. ALESION OPHTHALMIC SOLUTION 0.05% [Concomitant]
     Dosage: UNK
     Dates: start: 20220319, end: 20220618
  11. FLUMETHOLON OPHTHALMIC [Concomitant]
     Dosage: UNK
     Dates: start: 20190223, end: 201903
  12. FLUMETHOLON OPHTHALMIC [Concomitant]
     Dosage: UNK
     Dates: start: 20210319, end: 20220618
  13. LIVOSTIN NASAL SOLUTION (LEVOCABASTINE HYDROCHLORIDE) [Concomitant]
     Dosage: UNK
     Dates: start: 20190223, end: 201903
  14. CELESTAMINE [Concomitant]
     Active Substance: BETAMETHASONE\DEXCHLORPHENIRAMINE MALEATE
     Dosage: UNK
     Dates: start: 20190223, end: 201902
  15. CELESTAMINE [Concomitant]
     Active Substance: BETAMETHASONE\DEXCHLORPHENIRAMINE MALEATE
     Dosage: UNK
     Dates: start: 20210222, end: 20210307
  16. CELESTAMINE [Concomitant]
     Active Substance: BETAMETHASONE\DEXCHLORPHENIRAMINE MALEATE
     Dosage: UNK
     Dates: start: 20220319, end: 20220618
  17. NEO-MEDROL EE OINTMENT [Concomitant]
     Dosage: UNK
     Dates: start: 20190223, end: 201903
  18. XYZAL [Concomitant]
     Active Substance: LEVOCETIRIZINE DIHYDROCHLORIDE
     Dosage: UNK
     Dates: start: 20210222, end: 20210521
  19. XYZAL [Concomitant]
     Active Substance: LEVOCETIRIZINE DIHYDROCHLORIDE
     Dosage: UNK
     Dates: start: 20220319, end: 20220618
  20. NASONEX [Concomitant]
     Active Substance: MOMETASONE FUROATE
     Dosage: UNK
     Dates: start: 20210222, end: 20210521
  21. DOVATO [Concomitant]
     Active Substance: DOLUTEGRAVIR SODIUM\LAMIVUDINE
     Indication: HIV infection
     Dosage: 1 DF, 1D
     Dates: start: 20220620

REACTIONS (7)
  - Tinea pedis [Recovering/Resolving]
  - Dyspepsia [Recovering/Resolving]
  - Tinea pedis [Recovering/Resolving]
  - Hand-foot-and-mouth disease [Recovering/Resolving]
  - Influenza [Recovering/Resolving]
  - Plantar fasciitis [Recovering/Resolving]
  - Anal neoplasm [Recovering/Resolving]

NARRATIVE: CASE EVENT DATE: 20170915
